FAERS Safety Report 19555104 (Version 1)
Quarter: 2021Q3

REPORT INFORMATION
  Report Type: Spontaneous
  Country: US (occurrence: US)
  Receive Date: 20210715
  Receipt Date: 20210715
  Transmission Date: 20211014
  Serious: Yes (Other)
  Sender: FDA-Public Use
  Company Number: US-HIKMA PHARMACEUTICALS USA INC.-US-H14001-21-03247

PATIENT
  Age: 24 Year
  Sex: Female

DRUGS (1)
  1. CISPLATIN. [Suspect]
     Active Substance: CISPLATIN
     Indication: THYMIC CANCER METASTATIC
     Dosage: UNKNOWN
     Route: 065

REACTIONS (4)
  - Cardiac arrest [Unknown]
  - Obstructive shock [Unknown]
  - Drug intolerance [Unknown]
  - Condition aggravated [Unknown]
